FAERS Safety Report 8240642-9 (Version None)
Quarter: 2012Q1

REPORT INFORMATION
  Report Type: 
  Country: None (occurrence: None)
  Receive Date: 20120328
  Receipt Date: 20120321
  Transmission Date: 20120608
  Serious: Yes (Other)
  Sender: FDA-Public Use
  Company Number: US-PFIZER INC-2012074427

PATIENT
  Sex: Female

DRUGS (1)
  1. SUTENT [Suspect]
     Indication: HEPATIC CANCER METASTATIC
     Dosage: 25 MG AT A DURATION OF 28 DAYS ON AND 14 DAYS OFF
     Dates: start: 20111218

REACTIONS (4)
  - DYSGRAPHIA [None]
  - CONFUSIONAL STATE [None]
  - DISTURBANCE IN ATTENTION [None]
  - MEMORY IMPAIRMENT [None]
